FAERS Safety Report 21771019 (Version 6)
Quarter: 2025Q2

REPORT INFORMATION
  Report Type: Spontaneous
  Country: FR (occurrence: FR)
  Receive Date: 20221223
  Receipt Date: 20250625
  Transmission Date: 20250717
  Serious: Yes (Other)
  Sender: ABBVIE
  Company Number: FR-ABBVIE-4240661

PATIENT
  Age: 54 Year
  Sex: Male
  Weight: 71 kg

DRUGS (14)
  1. HUMIRA [Suspect]
     Active Substance: ADALIMUMAB
     Indication: Psoriatic arthropathy
     Dosage: FORM STRENGTH: 40 MILLIGRAM
     Route: 058
     Dates: start: 2016
  2. HUMIRA [Suspect]
     Active Substance: ADALIMUMAB
     Indication: Ankylosing spondylitis
     Dosage: FORM STRENGTH: 40 MILLIGRAM
     Route: 058
     Dates: start: 2013, end: 2016
  3. HUMIRA [Suspect]
     Active Substance: ADALIMUMAB
     Dosage: FORM STRENGTH: 40 MILLIGRAM
     Route: 058
     Dates: end: 20200415
  4. TRAMADOL HYDROCHLORIDE [Concomitant]
     Active Substance: TRAMADOL HYDROCHLORIDE
     Indication: Psoriatic arthropathy
     Dates: start: 2015, end: 2018
  5. INDOMETHACIN [Concomitant]
     Active Substance: INDOMETHACIN
     Indication: Psoriatic arthropathy
     Dates: start: 2017, end: 2018
  6. INDOMETHACIN [Concomitant]
     Active Substance: INDOMETHACIN
     Indication: Psoriatic arthropathy
     Dates: start: 2015, end: 2017
  7. INDOMETHACIN [Concomitant]
     Active Substance: INDOMETHACIN
     Indication: Psoriatic arthropathy
  8. THIOCOLCHICOSIDE [Concomitant]
     Active Substance: THIOCOLCHICOSIDE
     Indication: Product used for unknown indication
     Dates: start: 20160811, end: 20160811
  9. TRAMADOL [Concomitant]
     Active Substance: TRAMADOL
     Indication: Product used for unknown indication
     Dosage: FORM STRENGTH: 50 MG?AS NEEDED
     Dates: end: 2017
  10. TRAMADOL [Concomitant]
     Active Substance: TRAMADOL
     Indication: Product used for unknown indication
     Dates: start: 2017
  11. PREVENAR [Concomitant]
     Active Substance: PNEUMOCOCCAL 7-VALENT CONJUGATE VACCINE (DIPHTHERIA CRM197 PROTEIN)
     Indication: Prophylaxis
     Dates: start: 201805, end: 201805
  12. IRBESARTAN [Concomitant]
     Active Substance: IRBESARTAN
     Indication: Hypertension
     Dates: end: 2018
  13. PNEUMOVAX 23 [Concomitant]
     Active Substance: PNEUMOCOCCAL VACCINE, POLYVALENT 23
     Indication: Prophylaxis
     Dates: start: 201807, end: 201807
  14. AUGMENTIN [Concomitant]
     Active Substance: AMOXICILLIN\CLAVULANATE POTASSIUM
     Indication: Product used for unknown indication
     Dates: start: 20200324

REACTIONS (23)
  - Breast cancer metastatic [Unknown]
  - Lymphoedema [Unknown]
  - Liver function test abnormal [Unknown]
  - Hypermetabolism [Unknown]
  - Oedema peripheral [Unknown]
  - Unevaluable event [Unknown]
  - Synovial cyst [Unknown]
  - Psoriatic arthropathy [Unknown]
  - Therapeutic product effect incomplete [Unknown]
  - Synovitis [Unknown]
  - Pain in extremity [Unknown]
  - Condition aggravated [Unknown]
  - Peripheral venous disease [Unknown]
  - Pain in extremity [Unknown]
  - Psoriasis [Unknown]
  - Back pain [Unknown]
  - Pain [Unknown]
  - Lymphadenopathy mediastinal [Unknown]
  - Musculoskeletal stiffness [Unknown]
  - Headache [Unknown]
  - Dermal cyst [Unknown]
  - Breast neoplasm [Unknown]
  - Metastases to lymph nodes [Unknown]

NARRATIVE: CASE EVENT DATE: 20150101
